FAERS Safety Report 7525037-5 (Version None)
Quarter: 2011Q2

REPORT INFORMATION
  Report Type: 
  Country: None (occurrence: None)
  Receive Date: 20110606
  Receipt Date: 20110527
  Transmission Date: 20111010
  Serious: Yes (Hospitalization, Other)
  Sender: FDA-Public Use
  Company Number: US-GENZYME-THYM-1002011

PATIENT
  Sex: Female
  Weight: 75 kg

DRUGS (18)
  1. VELCADE [Concomitant]
     Dosage: 1.6 MG, UNK
     Route: 042
     Dates: start: 20101022, end: 20101022
  2. NEPHROCAPS [Concomitant]
     Indication: PRODUCT USED FOR UNKNOWN INDICATION
     Dosage: 1 DF, QD
     Route: 048
  3. PREDNISONE [Concomitant]
     Indication: RHEUMATOID ARTHRITIS
     Dosage: 2.5 MG, QD
     Route: 048
  4. VALCYTE [Concomitant]
     Indication: PRODUCT USED FOR UNKNOWN INDICATION
     Dosage: 225 MG, 2X/W
     Route: 048
  5. CALCIUM CARBONATE [Concomitant]
     Indication: MINERAL SUPPLEMENTATION
     Dosage: 2500 MG, QID
     Route: 048
  6. ARANESP [Concomitant]
     Indication: PRODUCT USED FOR UNKNOWN INDICATION
     Dosage: 150 MCG, QW
     Route: 058
  7. NYSTATIN [Concomitant]
     Indication: PRODUCT USED FOR UNKNOWN INDICATION
     Dosage: 5 ML, BID
     Route: 048
  8. ROXICODONE [Concomitant]
     Indication: PAIN
     Dosage: UNK
     Route: 048
  9. SYNTHROID [Concomitant]
     Indication: PRODUCT USED FOR UNKNOWN INDICATION
     Dosage: 125 MCG, QD
     Route: 048
  10. ABILIFY [Concomitant]
     Indication: BIPOLAR DISORDER
     Dosage: 5 MG, QD
     Route: 048
  11. NEXIUM [Concomitant]
     Indication: PRODUCT USED FOR UNKNOWN INDICATION
     Dosage: 40 MG, QD
     Route: 048
  12. NUTREN 2.0 [Suspect]
     Indication: MEDICAL DIET
  13. VELCADE [Concomitant]
     Indication: PROPHYLAXIS AGAINST TRANSPLANT REJECTION
     Dosage: 2.3 MG, UNK
     Route: 042
     Dates: start: 20101019, end: 20101019
  14. BENEFIBER [Concomitant]
     Indication: PRODUCT USED FOR UNKNOWN INDICATION
     Dosage: 1 DF, QD
     Route: 048
  15. ZINC [Concomitant]
     Indication: PRODUCT USED FOR UNKNOWN INDICATION
     Dosage: 220 MG, QD
     Route: 048
  16. ATIVAN [Concomitant]
     Indication: ANXIETY
     Dosage: UNK
     Route: 048
  17. THYMOGLOBULIN [Suspect]
     Indication: PROPHYLAXIS AGAINST TRANSPLANT REJECTION
     Dosage: UNK
     Route: 042
     Dates: start: 20101018, end: 20101023
  18. INSULIN [Concomitant]
     Indication: PRODUCT USED FOR UNKNOWN INDICATION

REACTIONS (9)
  - ENTEROCOCCAL BACTERAEMIA [None]
  - TRANSPLANT REJECTION [None]
  - STAPHYLOCOCCAL BACTERAEMIA [None]
  - PSEUDOMONAS INFECTION [None]
  - GRAFT LOSS [None]
  - VOMITING [None]
  - ENTEROCOCCAL INFECTION [None]
  - ATRIAL FIBRILLATION [None]
  - SERRATIA BACTERAEMIA [None]
